FAERS Safety Report 9199812 (Version 3)
Quarter: 2013Q2

REPORT INFORMATION
  Report Type: Spontaneous
  Country: US (occurrence: US)
  Receive Date: 20130329
  Receipt Date: 20130502
  Transmission Date: 20140414
  Serious: Yes (Other)
  Sender: FDA-Public Use
  Company Number: US-JNJFOC-20130313971

PATIENT
  Sex: Female
  Weight: 104.33 kg

DRUGS (11)
  1. STELARA [Suspect]
     Indication: PSORIASIS
     Route: 058
     Dates: start: 201201
  2. STELARA [Suspect]
     Indication: PSORIASIS
     Route: 058
     Dates: end: 201207
  3. STELARA [Suspect]
     Indication: PSORIASIS
     Route: 058
     Dates: start: 201212
  4. STELARA [Suspect]
     Indication: PSORIASIS
     Route: 058
     Dates: start: 201303
  5. STELARA [Suspect]
     Indication: PSORIASIS
     Route: 058
     Dates: start: 201207, end: 201212
  6. STELARA [Suspect]
     Indication: PSORIASIS
     Route: 058
     Dates: start: 20130227
  7. NEXIUM [Concomitant]
     Indication: BARRETT^S OESOPHAGUS
     Route: 065
     Dates: start: 201301
  8. NEXIUM [Concomitant]
     Indication: GASTROOESOPHAGEAL REFLUX DISEASE
     Route: 065
     Dates: start: 201301
  9. LABETALOL [Concomitant]
     Indication: HYPERTENSION
     Route: 065
     Dates: start: 2010
  10. RANITIDINE [Concomitant]
     Indication: ANTACID THERAPY
     Route: 065
     Dates: start: 201207
  11. AVIANE [Concomitant]
     Indication: CONTRACEPTION
     Route: 065
     Dates: start: 201211

REACTIONS (7)
  - Dehydration [Recovered/Resolved]
  - Influenza [Recovering/Resolving]
  - Hepatic enzyme increased [Unknown]
  - Weight decreased [Not Recovered/Not Resolved]
  - Drug ineffective [Not Recovered/Not Resolved]
  - Wrong technique in drug usage process [Not Recovered/Not Resolved]
  - Incorrect storage of drug [Not Recovered/Not Resolved]
